FAERS Safety Report 24850221 (Version 1)
Quarter: 2025Q1

REPORT INFORMATION
  Report Type: Spontaneous
  Country: JP (occurrence: JP)
  Receive Date: 20250116
  Receipt Date: 20250116
  Transmission Date: 20250408
  Serious: Yes (Hospitalization, Other)
  Sender: CLINIGEN
  Company Number: JP-CLINIGEN-CLI2025000001

PATIENT

DRUGS (1)
  1. FOSCAVIR [Suspect]
     Active Substance: FOSCARNET SODIUM
     Indication: Stem cell therapy
     Route: 065

REACTIONS (2)
  - Coma [Unknown]
  - Off label use [Unknown]
